FAERS Safety Report 17418923 (Version 6)
Quarter: 2020Q3

REPORT INFORMATION
  Report Type: Report from Study
  Country: GB (occurrence: GB)
  Receive Date: 20200214
  Receipt Date: 20200806
  Transmission Date: 20201102
  Serious: Yes (Hospitalization)
  Sender: FDA-Public Use
  Company Number: GB-ROCHE-2545127

PATIENT
  Age: 43 Year
  Sex: Female
  Weight: 73.7 kg

DRUGS (84)
  1. CHLORPHENAMINE [Concomitant]
     Active Substance: CHLORPHENIRAMINE MALEATE
     Dosage: WEEK 24
     Dates: start: 20130220
  2. CHLORPHENAMINE [Concomitant]
     Active Substance: CHLORPHENIRAMINE MALEATE
     Dosage: WEEK 48
     Dates: start: 20130904
  3. PARACETAMOL [Concomitant]
     Active Substance: ACETAMINOPHEN
     Indication: PREMEDICATION
     Dosage: BASELINE (WEEK 1)
     Dates: start: 20121003
  4. PARACETAMOL [Concomitant]
     Active Substance: ACETAMINOPHEN
     Dosage: OLE?WEEK 24
     Dates: start: 20150218
  5. PARACETAMOL [Concomitant]
     Active Substance: ACETAMINOPHEN
     Dosage: OLE?WEEK 48
     Dates: start: 20150805
  6. PARACETAMOL [Concomitant]
     Active Substance: ACETAMINOPHEN
     Dates: start: 20200202, end: 20200202
  7. METHYLPREDNISOLONE. [Concomitant]
     Active Substance: METHYLPREDNISOLONE
     Dosage: WEEK 2
     Dates: start: 20121017, end: 20121017
  8. METHYLPREDNISOLONE. [Concomitant]
     Active Substance: METHYLPREDNISOLONE
     Dosage: OLE?WEEK 2
     Dates: start: 20140917, end: 20140917
  9. METHYLPREDNISOLONE. [Concomitant]
     Active Substance: METHYLPREDNISOLONE
     Dosage: OLE?WEEK 48
     Dates: start: 20150805, end: 20150805
  10. METHYLPREDNISOLONE. [Concomitant]
     Active Substance: METHYLPREDNISOLONE
     Dosage: OLE?WEEK 96
     Dates: start: 20160706, end: 20160706
  11. METHYLPREDNISOLONE. [Concomitant]
     Active Substance: METHYLPREDNISOLONE
     Dosage: OLE?WEEK 192
     Dates: start: 20180509, end: 20180509
  12. CITALOPRAM [Concomitant]
     Active Substance: CITALOPRAM HYDROBROMIDE
     Indication: DEPRESSED MOOD
     Dates: start: 201208, end: 20130220
  13. INTERFERON BETA?1A [Suspect]
     Active Substance: INTERFERON BETA-1A
     Indication: RELAPSING-REMITTING MULTIPLE SCLEROSIS
     Dosage: THREE TIMES PER WEEK
     Route: 058
     Dates: start: 20140806, end: 20140901
  14. CHLORPHENAMINE [Concomitant]
     Active Substance: CHLORPHENIRAMINE MALEATE
     Dosage: OLE: WEEK 120
     Dates: start: 20161221
  15. CHLORPHENAMINE [Concomitant]
     Active Substance: CHLORPHENIRAMINE MALEATE
     Dosage: OLE: WEEK 192
     Dates: start: 20180509
  16. CHLORPHENAMINE [Concomitant]
     Active Substance: CHLORPHENIRAMINE MALEATE
     Dosage: OLE: WEEK 240
     Dates: start: 20190410
  17. CHLORPHENAMINE [Concomitant]
     Active Substance: CHLORPHENIRAMINE MALEATE
     Dosage: OLE: WEEK 264
     Dates: start: 20190925
  18. PARACETAMOL [Concomitant]
     Active Substance: ACETAMINOPHEN
     Dosage: OLE?WEEK 120
     Dates: start: 20161221
  19. METHYLPREDNISOLONE. [Concomitant]
     Active Substance: METHYLPREDNISOLONE
     Dosage: WEEK 48
     Dates: start: 20130904, end: 20130904
  20. METHYLPREDNISOLONE. [Concomitant]
     Active Substance: METHYLPREDNISOLONE
     Dosage: WEEK 72
     Dates: start: 20140219, end: 20140219
  21. METHYLPREDNISOLONE. [Concomitant]
     Active Substance: METHYLPREDNISOLONE
     Dosage: OLE?WEEK 72
     Dates: start: 20160120, end: 20160120
  22. HARTMANNS [Concomitant]
     Active Substance: CALCIUM CHLORIDE\POTASSIUM CHLORIDE\SODIUM LACTATE
     Dosage: 1000 MILLILITER^S)
     Dates: start: 20200202, end: 20200202
  23. CHLORPHENAMINE [Concomitant]
     Active Substance: CHLORPHENIRAMINE MALEATE
     Dosage: OLE: WEEK 48
     Dates: start: 20150805
  24. CHLORPHENAMINE [Concomitant]
     Active Substance: CHLORPHENIRAMINE MALEATE
     Dosage: OLE: WEEK 72
     Dates: start: 20160120
  25. CHLORPHENAMINE [Concomitant]
     Active Substance: CHLORPHENIRAMINE MALEATE
     Dosage: OLE: WEEK 96
     Dates: start: 20160706
  26. CHLORPHENAMINE [Concomitant]
     Active Substance: CHLORPHENIRAMINE MALEATE
     Dosage: OLE: WEEK 216
     Dates: start: 20181024
  27. PARACETAMOL [Concomitant]
     Active Substance: ACETAMINOPHEN
     Dosage: OLE?WEEK 2
     Dates: start: 20140917
  28. PARACETAMOL [Concomitant]
     Active Substance: ACETAMINOPHEN
     Dosage: OLE?WEEK 216
     Dates: start: 20181024
  29. METHYLPREDNISOLONE. [Concomitant]
     Active Substance: METHYLPREDNISOLONE
     Dosage: WEEK 24
     Dates: start: 20130320
  30. METHYLPREDNISOLONE. [Concomitant]
     Active Substance: METHYLPREDNISOLONE
     Dosage: OLE?WEEK 144
     Dates: start: 20170607, end: 20170607
  31. METHYLPREDNISOLONE. [Concomitant]
     Active Substance: METHYLPREDNISOLONE
     Dosage: OLE?WEEK 216
     Dates: start: 20181024, end: 20181024
  32. METHYLPREDNISOLONE. [Concomitant]
     Active Substance: METHYLPREDNISOLONE
     Dosage: OLE?WEEK 240
     Dates: start: 20190410, end: 20190410
  33. AMANTADINE. [Concomitant]
     Active Substance: AMANTADINE HYDROCHLORIDE
     Indication: FATIGUE
     Dates: start: 20130503
  34. COCODAMOL [Concomitant]
     Active Substance: ACETAMINOPHEN\CODEINE PHOSPHATE
     Indication: PAIN IN EXTREMITY
     Dosage: 1 TABLET
     Dates: start: 20140729
  35. TAZOCIN [Concomitant]
     Active Substance: PIPERACILLIN SODIUM\TAZOBACTAM SODIUM
     Indication: ANAL ABSCESS
     Dates: start: 20200202
  36. PLACEBO [Suspect]
     Active Substance: UNSPECIFIED INGREDIENT
     Indication: RELAPSING-REMITTING MULTIPLE SCLEROSIS
     Dosage: INFUSIONS ON DAYS 1 AND 15 FOR THE FIRST DOSE AND AS A SINGLE INFUSION OF 600 MG FOR ALL SUBSEQUENT
     Route: 042
     Dates: start: 20121003, end: 20121003
  37. CHLORPHENAMINE [Concomitant]
     Active Substance: CHLORPHENIRAMINE MALEATE
     Dosage: WEEK 2
     Dates: start: 20121017
  38. CHLORPHENAMINE [Concomitant]
     Active Substance: CHLORPHENIRAMINE MALEATE
     Dosage: OLE: WEEK 168
     Dates: start: 20171123
  39. PARACETAMOL [Concomitant]
     Active Substance: ACETAMINOPHEN
     Dosage: WEEK 48
     Dates: start: 20130904
  40. PARACETAMOL [Concomitant]
     Active Substance: ACETAMINOPHEN
     Dosage: WEEK 72
     Dates: start: 20140219
  41. PARACETAMOL [Concomitant]
     Active Substance: ACETAMINOPHEN
     Dates: start: 20150128, end: 20150130
  42. LEMSIP [Concomitant]
     Indication: NASOPHARYNGITIS
     Dosage: 1 SACHET
     Dates: start: 20160202, end: 20160202
  43. CLONAZEPAM. [Concomitant]
     Active Substance: CLONAZEPAM
     Dates: start: 20130923, end: 20141126
  44. CLONAZEPAM. [Concomitant]
     Active Substance: CLONAZEPAM
     Dates: start: 20141127
  45. ONDANSETRON [Concomitant]
     Active Substance: ONDANSETRON
     Indication: NAUSEA
     Dates: start: 20200202, end: 20200202
  46. DAKTACORT [Concomitant]
     Active Substance: HYDROCORTISONE\MICONAZOLE NITRATE
     Dosage: 1 DROP
     Dates: start: 20200407
  47. PARACETAMOL [Concomitant]
     Active Substance: ACETAMINOPHEN
     Dosage: OLE?WEEK 240
     Dates: start: 20190410
  48. LEMSIP [Concomitant]
     Dosage: 1 SACHET
     Dates: start: 20170925, end: 20170930
  49. MICROGYNON [Concomitant]
     Active Substance: ETHINYL ESTRADIOL\LEVONORGESTREL ACETATE
     Indication: CONTRACEPTION
     Dates: start: 20131011
  50. COCODAMOL [Concomitant]
     Active Substance: ACETAMINOPHEN\CODEINE PHOSPHATE
     Indication: BACK PAIN
  51. MIRABEGRON [Concomitant]
     Active Substance: MIRABEGRON
     Indication: HYPERTONIC BLADDER
     Dates: start: 20181026
  52. FLUCLOXACILLIN [Concomitant]
     Active Substance: FLUCLOXACILLIN
     Indication: INFECTION
     Dates: start: 20200430
  53. PARACETAMOL [Concomitant]
     Active Substance: ACETAMINOPHEN
     Dosage: OLE?WEEK 96
     Dates: start: 20160706
  54. PARACETAMOL [Concomitant]
     Active Substance: ACETAMINOPHEN
     Dosage: OLE?WEEK 192
     Dates: start: 20180509
  55. PARACETAMOL [Concomitant]
     Active Substance: ACETAMINOPHEN
     Dates: start: 20140914, end: 20140916
  56. METHYLPREDNISOLONE. [Concomitant]
     Active Substance: METHYLPREDNISOLONE
     Dosage: OLE?WEEK 24
     Dates: start: 20150218, end: 20150218
  57. METHYLPREDNISOLONE. [Concomitant]
     Active Substance: METHYLPREDNISOLONE
     Dosage: OLE?WEEK 168
     Dates: start: 20171123, end: 20171123
  58. AMANTADINE. [Concomitant]
     Active Substance: AMANTADINE HYDROCHLORIDE
     Indication: FATIGUE
     Dates: start: 201208, end: 20130220
  59. SOLIFENACIN [Concomitant]
     Active Substance: SOLIFENACIN
     Indication: MICTURITION URGENCY
     Dates: start: 20160330
  60. CHLORPHENAMINE [Concomitant]
     Active Substance: CHLORPHENIRAMINE MALEATE
     Dosage: OLE: WEEK 0
     Dates: start: 20140903
  61. CHLORPHENAMINE [Concomitant]
     Active Substance: CHLORPHENIRAMINE MALEATE
     Dosage: OLE: WEEK 2
     Dates: start: 20140917
  62. CHLORPHENAMINE [Concomitant]
     Active Substance: CHLORPHENIRAMINE MALEATE
     Dosage: OLE: WEEK 24
     Dates: start: 20150218
  63. CHLORPHENAMINE [Concomitant]
     Active Substance: CHLORPHENIRAMINE MALEATE
     Dosage: OLE: WEEK 144
     Dates: start: 20170607
  64. PARACETAMOL [Concomitant]
     Active Substance: ACETAMINOPHEN
     Indication: ANALGESIC THERAPY
     Dosage: WEEK 2
     Dates: start: 20121017
  65. PARACETAMOL [Concomitant]
     Active Substance: ACETAMINOPHEN
     Indication: HEADACHE
     Dosage: WEEK 24
     Dates: start: 20130220
  66. PARACETAMOL [Concomitant]
     Active Substance: ACETAMINOPHEN
     Dosage: OLE?WEEK 0
     Dates: start: 20140903
  67. PARACETAMOL [Concomitant]
     Active Substance: ACETAMINOPHEN
     Dosage: OLE?WEEK 144
     Dates: start: 20170607
  68. METHYLPREDNISOLONE. [Concomitant]
     Active Substance: METHYLPREDNISOLONE
     Indication: PREMEDICATION
     Dosage: BASELINE (WEEK 1)
     Dates: start: 20121003, end: 20121003
  69. METHYLPREDNISOLONE. [Concomitant]
     Active Substance: METHYLPREDNISOLONE
     Dosage: OLE?WEEK 0
     Dates: start: 20140903, end: 20140903
  70. METHYLPREDNISOLONE. [Concomitant]
     Active Substance: METHYLPREDNISOLONE
     Dosage: OLE?WEEK 264
     Dates: start: 20190925, end: 20190925
  71. CITALOPRAM [Concomitant]
     Active Substance: CITALOPRAM HYDROBROMIDE
     Indication: ANXIETY
     Dates: start: 20130503, end: 20170816
  72. CITALOPRAM [Concomitant]
     Active Substance: CITALOPRAM HYDROBROMIDE
     Dates: start: 20170817
  73. REGURIN [Concomitant]
     Active Substance: TROSPIUM CHLORIDE
     Indication: MICTURITION URGENCY
     Dates: start: 20180419
  74. OCRELIZUMAB. [Suspect]
     Active Substance: OCRELIZUMAB
     Indication: RELAPSING-REMITTING MULTIPLE SCLEROSIS
     Dosage: INFUSIONS ON DAYS 1 AND 15 FOR THE FIRST DOSE AND AS A SINGLE INFUSION OF 600 MG FOR ALL SUBSEQUENT
     Route: 042
     Dates: start: 20140903, end: 20140903
  75. CHLORPHENAMINE [Concomitant]
     Active Substance: CHLORPHENIRAMINE MALEATE
     Indication: PREMEDICATION
     Dosage: BASELINE (WEEK 1)
     Dates: start: 20121003
  76. CHLORPHENAMINE [Concomitant]
     Active Substance: CHLORPHENIRAMINE MALEATE
     Dosage: WEEK 72
     Dates: start: 20140219
  77. PARACETAMOL [Concomitant]
     Active Substance: ACETAMINOPHEN
     Dosage: OLE?WEEK 72
     Dates: start: 20160120
  78. PARACETAMOL [Concomitant]
     Active Substance: ACETAMINOPHEN
     Dosage: OLE?WEEK 168
     Dates: start: 20171123
  79. PARACETAMOL [Concomitant]
     Active Substance: ACETAMINOPHEN
     Dosage: OLE?WEEK 264
     Dates: start: 20190925
  80. METHYLPREDNISOLONE. [Concomitant]
     Active Substance: METHYLPREDNISOLONE
     Dosage: OLE?WEEK 120
     Dates: start: 20161221, end: 20161221
  81. INFLUENZA VACCINE [Concomitant]
     Active Substance: INFLUENZA VIRUS VACCINE
     Dosage: 0.50 MILLILITER^S)
     Dates: start: 20140115, end: 20140115
  82. CLONAZEPAM. [Concomitant]
     Active Substance: CLONAZEPAM
     Indication: TREMOR
     Dosage: 0.50 MILLIGRAM
     Dates: start: 20130902, end: 20130922
  83. GABAPENTIN. [Concomitant]
     Active Substance: GABAPENTIN
     Dates: start: 20140923
  84. CLARITHROMYCIN. [Concomitant]
     Active Substance: CLARITHROMYCIN
     Indication: INFECTION
     Dates: start: 20200504

REACTIONS (1)
  - Anal abscess [Recovered/Resolved]

NARRATIVE: CASE EVENT DATE: 20200201
